FAERS Safety Report 4631447-6 (Version None)
Quarter: 2005Q2

REPORT INFORMATION
  Report Type: 
  Country: None (occurrence: None)
  Receive Date: 20050407
  Receipt Date: 20050330
  Transmission Date: 20051028
  Serious: Yes (Death, Hospitalization)
  Sender: FDA-Public Use
  Company Number: 163-20785-04100284

PATIENT
  Age: 82 Year
  Sex: Male

DRUGS (4)
  1. THALOMID [Suspect]
     Indication: MYELODYSPLASTIC SYNDROME
     Dosage: 100 MG, QD, ORAL
     Route: 048
     Dates: start: 20040824, end: 20041004
  2. THALOMID [Suspect]
     Indication: REFRACTORY ANAEMIA
     Dosage: 100 MG, QD, ORAL
     Route: 048
     Dates: start: 20040824, end: 20041004
  3. THALOMID [Suspect]
     Indication: SIDEROBLASTIC ANAEMIA
     Dosage: 100 MG, QD, ORAL
     Route: 048
     Dates: start: 20040824, end: 20041004
  4. PROCRIT (ERYTHTROPOIETIN) [Concomitant]

REACTIONS (6)
  - ACUTE LEUKAEMIA [None]
  - ASTHENIA [None]
  - DEPRESSION [None]
  - DISEASE PROGRESSION [None]
  - DRUG INEFFECTIVE [None]
  - FATIGUE [None]
